FAERS Safety Report 23648163 (Version 1)
Quarter: 2024Q1

REPORT INFORMATION
  Report Type: Spontaneous
  Country: IE (occurrence: IE)
  Receive Date: 20240319
  Receipt Date: 20240319
  Transmission Date: 20240410
  Serious: Yes (Hospitalization, Other)
  Sender: FDA-Public Use
  Company Number: IE-B.Braun Medical Inc.-2154530

PATIENT
  Age: 83 Year
  Sex: Male

DRUGS (12)
  1. DEXTROSE [Suspect]
     Active Substance: DEXTROSE\DEXTROSE MONOHYDRATE
  2. CALCIUM CHLORIDE [Suspect]
     Active Substance: CALCIUM CHLORIDE
  3. MAGNESIUM SULFATE [Suspect]
     Active Substance: MAGNESIUM SULFATE\MAGNESIUM SULFATE HEPTAHYDRATE
  4. SMOFLIPID [Suspect]
     Active Substance: FISH OIL\MEDIUM-CHAIN TRIGLYCERIDES\OLIVE OIL\SOYBEAN OIL
  5. SODIUM GLYCEROPHOSPHATE [Suspect]
     Active Substance: SODIUM GLYCEROPHOSPHATE
  6. POTASSIUM CHLORIDE [Suspect]
     Active Substance: POTASSIUM CHLORIDE
  7. SODIUM ACETATE [Suspect]
     Active Substance: SODIUM ACETATE
  8. IRON\MINERALS\POTASSIUM IOD\SODIUM FLUORIDE\SODIUM MOLYBDATE\SODIUM SE [Suspect]
     Active Substance: IRON\MINERALS\POTASSIUM IOD\SODIUM FLUORIDE\SODIUM MOLYBDATE\SODIUM SELENITE\ZINC
  9. DEXTROSE [Suspect]
     Active Substance: DEXTROSE\DEXTROSE MONOHYDRATE
  10. ZINC SULFATE [Suspect]
     Active Substance: ZINC SULFATE
  11. STERILE WATER [Suspect]
     Active Substance: WATER
  12. CERNEVIT [Suspect]
     Active Substance: VITAMINS

REACTIONS (2)
  - Hallucination [Recovering/Resolving]
  - Body temperature decreased [Recovering/Resolving]
